FAERS Safety Report 8489458-9 (Version None)
Quarter: 2012Q2

REPORT INFORMATION
  Report Type: 
  Country: None (occurrence: None)
  Receive Date: 20120628
  Receipt Date: 20120628
  Transmission Date: 20120825
  Serious: Yes (Other)
  Sender: FDA-Public Use
  Company Number: None

PATIENT
  Sex: Female

DRUGS (6)
  1. DIEURETUC [Concomitant]
  2. BENACAR [Concomitant]
  3. CRESTOR [Suspect]
     Indication: BLOOD CHOLESTEROL
     Dosage: 10MG ONCE A DAY PO
     Route: 048
  4. GEMFIBROZIL [Suspect]
     Indication: BLOOD CHOLESTEROL
     Dosage: 600MG 2X A DAY PO
     Route: 048
  5. ASPIRIN [Concomitant]
  6. ALIBRIUM [Concomitant]

REACTIONS (1)
  - PAIN IN EXTREMITY [None]
